FAERS Safety Report 4550710-0 (Version None)
Quarter: 2004Q4

REPORT INFORMATION
  Report Type: 
  Country: None (occurrence: None)
  Receive Date: 20041217
  Receipt Date: 20041026
  Transmission Date: 20050328
  Serious: No
  Sender: FDA-Public Use
  Company Number: 2004-BP-10861BP

PATIENT
  Age: 79 Year
  Sex: Male

DRUGS (8)
  1. SPIRIVA [Suspect]
     Indication: CHRONIC OBSTRUCTIVE AIRWAYS DISEASE
     Dosage: 18 MCG (18 MCG, 1 IN 1 D) IH
     Route: 055
     Dates: start: 20040801
  2. PREDNISONE [Suspect]
     Indication: SINUSITIS
     Dates: start: 20040901
  3. FLOVENT [Concomitant]
  4. LEVOXYL [Concomitant]
  5. TENORMIN [Concomitant]
  6. VITAMIN C (ASCORBIC ACID) [Concomitant]
  7. VITAMIN E [Concomitant]
  8. PAXIL [Concomitant]

REACTIONS (2)
  - SINUSITIS [None]
  - WEIGHT INCREASED [None]
